FAERS Safety Report 10871097 (Version 1)
Quarter: 2015Q1

REPORT INFORMATION
  Report Type: Spontaneous
  Country: FR (occurrence: FR)
  Receive Date: 20150226
  Receipt Date: 20150226
  Transmission Date: 20150721
  Serious: Yes (Other)
  Sender: FDA-Public Use
  Company Number: FR-TEVA-543812ISR

PATIENT
  Sex: Female

DRUGS (7)
  1. AVASTIN [Concomitant]
     Active Substance: BEVACIZUMAB
     Indication: BREAST CANCER
     Dosage: CHEMOTHERAPY TREATMENT
  2. PACLITAXEL TEVA 300MG/50 ML [Suspect]
     Active Substance: PACLITAXEL
     Indication: BREAST CANCER
     Dates: start: 20150116, end: 20150116
  3. ZARZIO [Concomitant]
     Active Substance: FILGRASTIM
  4. PACLITAXEL TEVA 300MG/50 ML [Suspect]
     Active Substance: PACLITAXEL
     Dates: start: 20150206, end: 20150206
  5. PACLITAXEL TEVA 300MG/50 ML [Suspect]
     Active Substance: PACLITAXEL
     Dates: start: 20150130, end: 20150130
  6. PACLITAXEL TEVA 300MG/50 ML [Suspect]
     Active Substance: PACLITAXEL
     Dates: start: 20150123, end: 20150123
  7. ZOPHREN [Concomitant]
     Active Substance: ONDANSETRON

REACTIONS (1)
  - Hallucination, visual [Unknown]
